FAERS Safety Report 7130878-2 (Version None)
Quarter: 2010Q4

REPORT INFORMATION
  Report Type: 
  Country: None (occurrence: None)
  Receive Date: 20101201
  Receipt Date: 20101122
  Transmission Date: 20110411
  Serious: Yes (Other)
  Sender: FDA-Public Use
  Company Number: ES-ASTRAZENECA-2010SE55503

PATIENT
  Age: 59 Year
  Sex: Female

DRUGS (5)
  1. SYMBICORT [Suspect]
     Indication: DYSPNOEA
     Dosage: TWO INHALATIONS TWICE A DAY
     Route: 055
     Dates: start: 20100922
  2. ENALAPRIL [Concomitant]
     Route: 048
  3. SIMVASTATIN [Concomitant]
     Route: 048
  4. OMEPRAZOLE [Concomitant]
     Route: 048
     Dates: start: 20060119
  5. PLAVIX [Concomitant]
     Route: 048

REACTIONS (3)
  - CHEST PAIN [None]
  - MALAISE [None]
  - PARAESTHESIA [None]
